FAERS Safety Report 9423194 (Version 1)
Quarter: 2013Q3

REPORT INFORMATION
  Report Type: Spontaneous
  Country: JP (occurrence: JP)
  Receive Date: 20130726
  Receipt Date: 20130726
  Transmission Date: 20140515
  Serious: Yes (Hospitalization)
  Sender: FDA-Public Use
  Company Number: JP-B.I. PHARMACEUTICALS,INC./RIDGEFIELD-2013-BI-21769NB

PATIENT
  Age: 75 Year
  Sex: Male

DRUGS (1)
  1. TWYNSTA [Suspect]
     Route: 065

REACTIONS (2)
  - Cellulitis [Unknown]
  - Sepsis [Unknown]
